FAERS Safety Report 5402222-X (Version None)
Quarter: 2007Q3

REPORT INFORMATION
  Report Type: 
  Country: None (occurrence: None)
  Receive Date: 20070727
  Receipt Date: 20070718
  Transmission Date: 20080115
  Serious: Yes (Hospitalization)
  Sender: FDA-Public Use
  Company Number: 2007-03366

PATIENT
  Age: 56 Year
  Sex: Female

DRUGS (5)
  1. PREDNISONE TAB [Suspect]
     Indication: IMMUNOSUPPRESSION
     Dosage: 2.5 MG, DAILY, ORAL; ORAL
     Route: 048
     Dates: start: 20070101, end: 20070101
  2. PREDNISONE TAB [Suspect]
     Indication: PROPHYLAXIS AGAINST TRANSPLANT REJECTION
     Dosage: 2.5 MG, DAILY, ORAL; ORAL
     Route: 048
     Dates: start: 20070101, end: 20070101
  3. PREDNISONE TAB [Suspect]
     Indication: IMMUNOSUPPRESSION
     Dosage: 2.5 MG, DAILY, ORAL; ORAL
     Route: 048
     Dates: start: 20070101, end: 20070101
  4. PREDNISONE TAB [Suspect]
     Indication: PROPHYLAXIS AGAINST TRANSPLANT REJECTION
     Dosage: 2.5 MG, DAILY, ORAL; ORAL
     Route: 048
     Dates: start: 20070101, end: 20070101
  5. TACROLIMUS [Concomitant]

REACTIONS (1)
  - SCLERODERMA RENAL CRISIS [None]
